FAERS Safety Report 19821276 (Version 1)
Quarter: 2021Q3

REPORT INFORMATION
  Report Type: Spontaneous
  Country: US (occurrence: US)
  Receive Date: 20210913
  Receipt Date: 20210913
  Transmission Date: 20211014
  Serious: Yes (Hospitalization)
  Sender: FDA-Public Use
  Company Number: US-MYLANLABS-2021M1060203

PATIENT
  Age: 26 Year
  Sex: Male

DRUGS (2)
  1. APIXABAN [Suspect]
     Active Substance: APIXABAN
     Indication: DEEP VEIN THROMBOSIS
     Route: 065
  2. DEFERASIROX. [Concomitant]
     Active Substance: DEFERASIROX
     Indication: IRON OVERLOAD
     Route: 065

REACTIONS (4)
  - Colitis ischaemic [Unknown]
  - Rectal haemorrhage [Recovered/Resolved]
  - Thrombocytopenia [Recovering/Resolving]
  - Coagulopathy [Recovering/Resolving]
